FAERS Safety Report 5214319-8 (Version None)
Quarter: 2007Q1

REPORT INFORMATION
  Report Type: 
  Country: None (occurrence: None)
  Receive Date: 20070122
  Receipt Date: 20070115
  Transmission Date: 20070707
  Serious: Yes (Other)
  Sender: FDA-Public Use
  Company Number: JP-MERCK-0610USA11985

PATIENT

DRUGS (6)
  1. PEPCID [Suspect]
     Route: 042
     Dates: start: 20061017
  2. DECADRON PHOSPHATE [Concomitant]
     Route: 042
     Dates: start: 20061017
  3. SODIUM CHLORIDE [Concomitant]
     Route: 042
     Dates: start: 20061017
  4. RANDA [Suspect]
     Route: 065
     Dates: start: 20061017, end: 20061017
  5. TAXOL [Suspect]
     Route: 065
     Dates: start: 20061017, end: 20061017
  6. KYTRIL [Concomitant]
     Route: 065
     Dates: start: 20061017

REACTIONS (2)
  - DISCOMFORT [None]
  - SHOCK [None]
